FAERS Safety Report 9960366 (Version 1)
Quarter: 2014Q1

REPORT INFORMATION
  Report Type: Report from Study
  Country: US (occurrence: US)
  Receive Date: 20140305
  Receipt Date: 20140305
  Transmission Date: 20141002
  Serious: No
  Sender: FDA-Public Use
  Company Number: US-ABBVIE-13P-163-1104577-00

PATIENT
  Age: 64 Year
  Sex: Male

DRUGS (5)
  1. HUMIRA [Suspect]
     Indication: CROHN^S DISEASE
     Route: 058
  2. ZOCOR [Concomitant]
     Indication: PRODUCT USED FOR UNKNOWN INDICATION
  3. FLAGYL [Concomitant]
     Indication: PRODUCT USED FOR UNKNOWN INDICATION
  4. CIPRO [Concomitant]
     Indication: PRODUCT USED FOR UNKNOWN INDICATION
  5. AUGMENTIN [Concomitant]
     Indication: PRODUCT USED FOR UNKNOWN INDICATION

REACTIONS (5)
  - Dyspepsia [Not Recovered/Not Resolved]
  - Headache [Not Recovered/Not Resolved]
  - Paraesthesia [Not Recovered/Not Resolved]
  - Formication [Not Recovered/Not Resolved]
  - Fatigue [Not Recovered/Not Resolved]
